FAERS Safety Report 4686186-2 (Version None)
Quarter: 2005Q2

REPORT INFORMATION
  Report Type: 
  Country: None (occurrence: None)
  Receive Date: 20050609
  Receipt Date: 20050602
  Transmission Date: 20051028
  Serious: Yes (Hospitalization)
  Sender: FDA-Public Use
  Company Number: FR-BOEHRINGER INGELHEIM PHARMACEUTICALS, INC.-2005-FF-00386FF

PATIENT
  Age: 71 Year
  Sex: Female

DRUGS (8)
  1. MICARDIS [Suspect]
     Route: 048
     Dates: end: 20050408
  2. ALLOPURINOL [Concomitant]
     Route: 048
     Dates: end: 20050408
  3. ZOMETA [Concomitant]
     Route: 042
     Dates: start: 20050401, end: 20050401
  4. METFORMIN HCL [Concomitant]
     Route: 048
     Dates: end: 20050408
  5. DAONIL [Concomitant]
     Route: 048
     Dates: end: 20050409
  6. PLAVIX [Concomitant]
     Route: 048
     Dates: end: 20050408
  7. ELISOR [Concomitant]
     Dates: end: 20050408
  8. DOLIPRANE [Concomitant]
     Route: 048
     Dates: end: 20050408

REACTIONS (1)
  - RENAL FAILURE ACUTE [None]
